FAERS Safety Report 4621584-4 (Version None)
Quarter: 2005Q1

REPORT INFORMATION
  Report Type: 
  Country: None (occurrence: None)
  Receive Date: 20050328
  Receipt Date: 20020129
  Transmission Date: 20050727
  Serious: No
  Sender: FDA-Public Use
  Company Number: 3305

PATIENT
  Age: 2 Month
  Sex: Male

DRUGS (3)
  1. AMIKACIN [Suspect]
     Dosage: 128 MG ONCE;
     Dates: start: 20011122, end: 20011122
  2. FRUSEMIDE [Concomitant]
  3. SPIRONOLACTONE [Concomitant]

REACTIONS (2)
  - ACCIDENTAL OVERDOSE [None]
  - MEDICATION ERROR [None]
